FAERS Safety Report 8449294-6 (Version None)
Quarter: 2012Q2

REPORT INFORMATION
  Report Type: 
  Country: None (occurrence: None)
  Receive Date: 20120619
  Receipt Date: 20120612
  Transmission Date: 20120825
  Serious: Yes (Hospitalization)
  Sender: FDA-Public Use
  Company Number: JP-B.I. PHARMACEUTICALS,INC./RIDGEFIELD-2012-BP-13531NB

PATIENT
  Age: 61 Year
  Sex: Male

DRUGS (6)
  1. PRADAXA [Suspect]
     Indication: ATRIAL FIBRILLATION
     Dosage: 220 MG
     Route: 048
     Dates: end: 20120612
  2. DIGOXIN [Concomitant]
     Indication: CARDIAC FAILURE
     Dosage: 60 MG
     Route: 048
  3. CONIEL [Concomitant]
     Indication: HYPERTENSION
     Dosage: 4 MG
     Route: 048
  4. INDERAL [Concomitant]
     Indication: ARRHYTHMIA
     Dosage: 60 MG
     Route: 048
  5. PRADAXA [Suspect]
     Indication: THROMBOSIS PROPHYLAXIS
  6. DIOVAN [Concomitant]
     Indication: HYPERTENSION
     Dosage: 160 MG
     Route: 048

REACTIONS (2)
  - RENAL IMPAIRMENT [None]
  - MELAENA [None]
